FAERS Safety Report 20851790 (Version 1)
Quarter: 2022Q2

REPORT INFORMATION
  Report Type: Spontaneous
  Country: KZ (occurrence: KZ)
  Receive Date: 20220520
  Receipt Date: 20220520
  Transmission Date: 20220721
  Serious: Yes (Other)
  Sender: FDA-Public Use
  Company Number: KZ-NOVOPROD-917989

PATIENT
  Age: 50 Year
  Sex: Female

DRUGS (2)
  1. LEVEMIR [Suspect]
     Active Substance: INSULIN DETEMIR
     Indication: Type 2 diabetes mellitus
     Dosage: 42 IU, QD (22 IU IN THE MORNING AND 20 IU IN THE EVENING)
     Route: 065
  2. NOVORAPID [Suspect]
     Active Substance: INSULIN ASPART
     Indication: Type 2 diabetes mellitus
     Dosage: 10 IU, TID
     Route: 065

REACTIONS (2)
  - Thyroid cancer [Unknown]
  - Hodgkin^s disease [Unknown]
